FAERS Safety Report 20063767 (Version 3)
Quarter: 2021Q4

REPORT INFORMATION
  Report Type: Report from Study
  Country: FR (occurrence: FR)
  Receive Date: 20211112
  Receipt Date: 20211125
  Transmission Date: 20220303
  Serious: Yes (Hospitalization)
  Sender: FDA-Public Use
  Company Number: FR-CELGENE-FRA-20211100594

PATIENT
  Age: 75 Year
  Sex: Male
  Weight: 63 kg

DRUGS (29)
  1. ABRAXANE [Suspect]
     Active Substance: PACLITAXEL
     Indication: Non-small cell lung cancer metastatic
     Route: 041
     Dates: start: 20210806, end: 20210930
  2. ABRAXANE [Suspect]
     Active Substance: PACLITAXEL
     Route: 041
     Dates: start: 20211015, end: 20211015
  3. PEMBROLIZUMAB [Suspect]
     Active Substance: PEMBROLIZUMAB
     Indication: Non-small cell lung cancer metastatic
     Dosage: 200 MILLIGRAM
     Route: 041
     Dates: start: 20210806, end: 20210923
  4. PEMBROLIZUMAB [Suspect]
     Active Substance: PEMBROLIZUMAB
     Dosage: 200 MILLIGRAM
     Route: 041
     Dates: start: 20211015, end: 20211015
  5. CARBOPLATIN [Suspect]
     Active Substance: CARBOPLATIN
     Indication: Non-small cell lung cancer metastatic
     Route: 041
     Dates: start: 20210806, end: 20210923
  6. CARBOPLATIN [Suspect]
     Active Substance: CARBOPLATIN
     Route: 041
     Dates: start: 20211015, end: 20211015
  7. CLOPIDOGREL [Concomitant]
     Active Substance: CLOPIDOGREL BISULFATE
     Indication: Cardiac failure
     Route: 065
     Dates: start: 200601
  8. TRANDOLAPRIL [Concomitant]
     Active Substance: TRANDOLAPRIL
     Indication: Cardiac failure
     Route: 065
     Dates: start: 200601
  9. EPLERENONE [Concomitant]
     Active Substance: EPLERENONE
     Indication: Diuretic therapy
     Route: 065
     Dates: start: 200601
  10. FUROSEMIDE [Concomitant]
     Active Substance: FUROSEMIDE
     Indication: Cardiac failure
     Route: 065
     Dates: start: 200601
  11. DIETARY SUPPLEMENT [Concomitant]
     Active Substance: DIETARY SUPPLEMENT
     Indication: Routine health maintenance
     Dosage: 1 UNIT
     Route: 048
     Dates: start: 20210707
  12. FRESUBIN ORIGINAL [Concomitant]
     Indication: Routine health maintenance
     Dosage: 1 UNIT
     Route: 048
     Dates: start: 20210707
  13. FRESUBIN JUCY DRINK [Concomitant]
     Indication: Prophylaxis
     Dosage: 1 VIAL
     Route: 048
     Dates: start: 20210707
  14. BISOPROLOL [Concomitant]
     Active Substance: BISOPROLOL
     Indication: Cardiac failure
     Dosage: 2.5 MILLIGRAM
     Route: 048
     Dates: start: 20210713
  15. MOVICOL [Concomitant]
     Active Substance: POLYETHYLENE GLYCOL 3350\POTASSIUM CHLORIDE\SODIUM BICARBONATE\SODIUM CHLORIDE
     Indication: Prophylaxis
     Dosage: 1 BAG
     Route: 048
     Dates: start: 20210813
  16. PRIMPERAN [Concomitant]
     Active Substance: METOCLOPRAMIDE HYDROCHLORIDE
     Indication: Prophylaxis
     Route: 048
     Dates: start: 20210813
  17. SODIUM BICARBONATE [Concomitant]
     Active Substance: SODIUM BICARBONATE
     Indication: Prophylaxis
     Route: 048
     Dates: start: 20210813
  18. ARANESP [Concomitant]
     Active Substance: DARBEPOETIN ALFA
     Indication: Prophylaxis
     Route: 058
     Dates: start: 20210915
  19. ARANESP [Concomitant]
     Active Substance: DARBEPOETIN ALFA
     Indication: Anaemia prophylaxis
     Route: 058
     Dates: start: 20211006
  20. DEMECLOCYCLINE [Concomitant]
     Active Substance: DEMECLOCYCLINE
     Indication: Hypotension
     Dosage: 600 MILLIGRAM
     Route: 048
     Dates: start: 20210915
  21. PREDNISONE [Concomitant]
     Active Substance: PREDNISONE
     Indication: Premedication
     Dosage: 40 MILLIGRAM
     Route: 048
     Dates: start: 20211007, end: 20211007
  22. PREDNISONE [Concomitant]
     Active Substance: PREDNISONE
     Route: 048
     Dates: start: 20211014, end: 20211014
  23. FOLIC ACID [Concomitant]
     Active Substance: FOLIC ACID
     Indication: Anaemia
     Route: 048
     Dates: start: 20211008
  24. ONDANSETRON [Concomitant]
     Active Substance: ONDANSETRON
     Indication: Premedication
     Route: 041
     Dates: start: 20211015, end: 20211015
  25. SOLU-MEDROL [Concomitant]
     Active Substance: METHYLPREDNISOLONE SODIUM SUCCINATE
     Indication: Premedication
     Route: 041
     Dates: start: 20211015, end: 20211015
  26. EMEND [Concomitant]
     Active Substance: APREPITANT
     Indication: Premedication
     Route: 048
     Dates: start: 20211015, end: 20211015
  27. EMEND [Concomitant]
     Active Substance: APREPITANT
     Route: 048
     Dates: start: 20211016, end: 20211017
  28. PEGFILGRASTIM [Concomitant]
     Active Substance: PEGFILGRASTIM
     Indication: Premedication
     Route: 041
     Dates: start: 20211018, end: 20211018
  29. ASPIRIN DL-LYSINE [Concomitant]
     Active Substance: ASPIRIN DL-LYSINE
     Indication: Product used for unknown indication
     Route: 065

REACTIONS (2)
  - Cardiac ventricular thrombosis [Not Recovered/Not Resolved]
  - Pain in extremity [Not Recovered/Not Resolved]

NARRATIVE: CASE EVENT DATE: 20211020
